FAERS Safety Report 8616894-X (Version None)
Quarter: 2012Q3

REPORT INFORMATION
  Report Type: 
  Country: None (occurrence: None)
  Receive Date: 20120823
  Receipt Date: 20120809
  Transmission Date: 20120928
  Serious: No
  Sender: FDA-Public Use
  Company Number: US-009507513-1208USA004802

PATIENT

DRUGS (1)
  1. MAXALT-MLT [Suspect]
     Indication: MIGRAINE

REACTIONS (2)
  - PAIN IN JAW [None]
  - NECK PAIN [None]
